FAERS Safety Report 8585555-8 (Version None)
Quarter: 2012Q3

REPORT INFORMATION
  Report Type: 
  Country: None (occurrence: None)
  Receive Date: 20120810
  Receipt Date: 20120802
  Transmission Date: 20120928
  Serious: Yes (Other)
  Sender: FDA-Public Use
  Company Number: CA-JNJFOC-20120801782

PATIENT
  Sex: Female
  Weight: 74 kg

DRUGS (8)
  1. TRAZODONE HYDROCHLORIDE [Concomitant]
     Dosage: DOSE: 50 (UNITS UNSPECIFIED)
     Route: 065
  2. PREVACID [Concomitant]
     Dosage: DOSE: 30 (UNITS UNSPECIFIED)
     Route: 065
  3. REMICADE [Suspect]
     Indication: COLITIS ULCERATIVE
     Route: 042
     Dates: start: 20120802
  4. METHOTREXATE [Concomitant]
     Dosage: DOSE: 0.8 (UNITS UNSPECIFIED)
     Route: 065
  5. REMICADE [Suspect]
     Route: 042
     Dates: start: 20111001
  6. METRONIDAZOLE [Concomitant]
     Dosage: DOSE: 250 (UNITS UNSPECIFIED)
     Route: 065
  7. CIPROFLOXACIN HCL [Concomitant]
     Dosage: DOSE: 500 (UNITS UNSPECIFIED)
     Route: 065
  8. CELEXA [Concomitant]
     Dosage: DOSE: 40 (UNITS UNSPECIFIED)
     Route: 065

REACTIONS (2)
  - ILEOSTOMY [None]
  - POSTOPERATIVE ABSCESS [None]
